FAERS Safety Report 9959016 (Version 1)
Quarter: 2014Q1

REPORT INFORMATION
  Report Type: Spontaneous
  Country: BR (occurrence: None)
  Receive Date: 20140228
  Receipt Date: 20140228
  Transmission Date: 20141002
  Serious: Yes (Other)
  Sender: FDA-Public Use
  Company Number: AUR-APL-2014-02235

PATIENT
  Age: 58 Year
  Sex: Male

DRUGS (3)
  1. ATENOLOL (ATENOLOL) [Suspect]
     Indication: HYPERTENSION
     Dosage: 100 MG 2 IN 1 D
     Route: 048
     Dates: start: 201209
  2. METFORMIN (METFORMIN) [Suspect]
     Indication: DIABETES MELLITUS
     Dosage: 850 MG 2 IN 1 D
     Route: 048
     Dates: start: 201209
  3. BRILINTA (TICAGRELOR) [Suspect]
     Indication: PROPHYLAXIS
     Dosage: 90 MG 2 IN 1 D
     Route: 048
     Dates: start: 201209

REACTIONS (3)
  - Dyspnoea [None]
  - Weight decreased [None]
  - Off label use [None]
